FAERS Safety Report 7513204-6 (Version None)
Quarter: 2011Q2

REPORT INFORMATION
  Report Type: 
  Country: None (occurrence: None)
  Receive Date: 20110531
  Receipt Date: 20110510
  Transmission Date: 20111010
  Serious: No
  Sender: FDA-Public Use
  Company Number: US-B.I. PHARMACEUTICALS,INC./RIDGEFIELD-2011-BP-10348BP

PATIENT
  Age: 64 Year
  Sex: Male
  Weight: 80.74 kg

DRUGS (11)
  1. MULTAQ [Concomitant]
     Dosage: 800 MG
     Dates: start: 20110124
  2. ZETIA [Concomitant]
     Dosage: 10 MG
     Dates: start: 20101119
  3. CLONAZEPAM [Concomitant]
     Dosage: 1 MG
     Dates: start: 20070327
  4. PRADAXA [Suspect]
     Indication: ATRIAL FIBRILLATION
     Dosage: 300 MG
     Dates: start: 20110214, end: 20110401
  5. ASPIRIN [Concomitant]
     Dosage: 81 MG
     Dates: start: 20090526
  6. VITAMIN D [Concomitant]
     Dosage: 1000 U
     Dates: start: 20090526
  7. ZOCOR [Concomitant]
     Dosage: 20 MG
     Dates: start: 20101007
  8. NORVASC [Concomitant]
     Dosage: 5 MG
     Dates: start: 20100903
  9. DIOVAN [Concomitant]
     Dosage: 80 MG
     Dates: start: 20110103
  10. PROPECIA [Concomitant]
     Dates: start: 20100824
  11. MULTI-VITAMIN [Concomitant]
     Dates: start: 20080326

REACTIONS (2)
  - FLUSHING [None]
  - OROPHARYNGEAL PAIN [None]
